FAERS Safety Report 16767777 (Version 1)
Quarter: 2019Q3

REPORT INFORMATION
  Report Type: Spontaneous
  Country: US (occurrence: US)
  Receive Date: 20190903
  Receipt Date: 20190903
  Transmission Date: 20191005
  Serious: Yes (Other)
  Sender: FDA-Public Use
  Company Number: US-ALLERGAN-1935382US

PATIENT
  Sex: Female

DRUGS (4)
  1. VRAYLAR [Suspect]
     Active Substance: CARIPRAZINE
     Indication: PRODUCT USED FOR UNKNOWN INDICATION
     Dosage: 3 MG, UNKNOWN
     Route: 048
     Dates: start: 2019, end: 201908
  2. PAXIL [Concomitant]
     Active Substance: PAROXETINE HYDROCHLORIDE
     Dosage: 10 MG, UNKNOWN
     Dates: end: 201908
  3. VRAYLAR [Suspect]
     Active Substance: CARIPRAZINE
     Dosage: 1.5 MG, UNKNOWN
     Route: 048
     Dates: start: 2019, end: 2019
  4. ABILIFY [Concomitant]
     Active Substance: ARIPIPRAZOLE
     Dosage: 2 MG, UNKNOWN
     Dates: end: 201908

REACTIONS (3)
  - Serotonin syndrome [Recovered/Resolved]
  - Patient restraint [Recovered/Resolved]
  - Abnormal behaviour [Recovered/Resolved]

NARRATIVE: CASE EVENT DATE: 201908
